FAERS Safety Report 9825228 (Version 1)
Quarter: 2013Q4

REPORT INFORMATION
  Report Type: Spontaneous
  Country: US (occurrence: None)
  Receive Date: 20131028
  Receipt Date: 20131028
  Transmission Date: 20140711
  Serious: No
  Sender: FDA-Public Use
  Company Number: 2013US002433

PATIENT
  Age: 56 Year
  Sex: Female
  Weight: 91 kg

DRUGS (8)
  1. ICLUSIG [Suspect]
     Indication: CHRONIC MYELOID LEUKAEMIA
     Route: 048
     Dates: start: 20130717
  2. REMERON (MIRTAZAPHINE) [Concomitant]
  3. ACYCLOVIR (ACICLOVIR SODIUM) [Concomitant]
  4. PERCOCET (OXYCODONE HYDROCHORIDE, PARACETAMOL) [Concomitant]
  5. SEROQUEL (QUETIAPINE FUMARATE) [Concomitant]
  6. FIORICET (BUTALBITAL, CAFFEINE, PARACETAMOL) [Concomitant]
  7. CELEBREX (CELECOXIB) [Concomitant]
  8. ALPRAZOLAM (ALPRAZOLAM) [Concomitant]

REACTIONS (1)
  - Rash [None]
